FAERS Safety Report 7601625-2 (Version None)
Quarter: 2011Q3

REPORT INFORMATION
  Report Type: 
  Country: None (occurrence: None)
  Receive Date: 20110711
  Receipt Date: 20110707
  Transmission Date: 20111222
  Serious: Yes (Other)
  Sender: FDA-Public Use
  Company Number: US-GILEAD-2011-0041152

PATIENT
  Sex: Male

DRUGS (2)
  1. RANEXA [Suspect]
     Indication: ANGINA PECTORIS
     Route: 048
     Dates: start: 20110607
  2. RANEXA [Suspect]
     Route: 048

REACTIONS (1)
  - ANGINA PECTORIS [None]
